FAERS Safety Report 11253324 (Version 7)
Quarter: 2016Q3

REPORT INFORMATION
  Report Type: Report from Study
  Country: US (occurrence: US)
  Receive Date: 20150709
  Receipt Date: 20160704
  Transmission Date: 20161109
  Serious: Yes (Other)
  Sender: FDA-Public Use
  Company Number: PHHY2014US097889

PATIENT
  Age: 48 Year
  Sex: Female
  Weight: 107.5 kg

DRUGS (4)
  1. CYMBALTA [Concomitant]
     Active Substance: DULOXETINE HYDROCHLORIDE
     Indication: DEPRESSION
     Route: 065
     Dates: start: 20140521
  2. ZONEGRAN [Concomitant]
     Active Substance: ZONISAMIDE
     Indication: MIGRAINE
     Route: 065
     Dates: start: 20140410
  3. RITALIN [Concomitant]
     Active Substance: METHYLPHENIDATE HYDROCHLORIDE
     Indication: FATIGUE
     Dosage: UNK
     Route: 065
     Dates: start: 20140521, end: 20150512
  4. GILENYA [Suspect]
     Active Substance: FINGOLIMOD HYDROCHLORIDE
     Indication: MULTIPLE SCLEROSIS
     Dosage: UNK, QD
     Route: 048

REACTIONS (29)
  - Ingrowing nail [Recovered/Resolved]
  - Condition aggravated [Unknown]
  - Muscular weakness [Not Recovered/Not Resolved]
  - Drug eruption [Recovered/Resolved]
  - Type 2 diabetes mellitus [Not Recovered/Not Resolved]
  - Disturbance in attention [Recovered/Resolved]
  - Ligament sprain [Recovered/Resolved]
  - Intervertebral disc displacement [Recovered/Resolved]
  - Action tremor [Recovered/Resolved]
  - Blood triglycerides increased [Unknown]
  - Arthralgia [Recovered/Resolved]
  - Arthralgia [Recovered/Resolved]
  - Vision blurred [Recovered/Resolved]
  - Lymphocyte count decreased [Not Recovered/Not Resolved]
  - Blood calcium increased [Unknown]
  - Cognitive disorder [Recovered/Resolved]
  - Fall [Not Recovered/Not Resolved]
  - Suicidal ideation [Recovered/Resolved]
  - Hyperlipidaemia [Not Recovered/Not Resolved]
  - Micturition urgency [Recovered/Resolved]
  - Laceration [Recovered/Resolved]
  - Gait disturbance [Not Recovered/Not Resolved]
  - Arthralgia [Recovered/Resolved]
  - Constipation [Not Recovered/Not Resolved]
  - Temperature intolerance [Not Recovered/Not Resolved]
  - Concussion [Recovered/Resolved]
  - Hirsutism [Not Recovered/Not Resolved]
  - Muscle strain [Recovered/Resolved]
  - Blood cholesterol increased [Unknown]

NARRATIVE: CASE EVENT DATE: 20140228
